FAERS Safety Report 18683628 (Version 1)
Quarter: 2020Q4

REPORT INFORMATION
  Report Type: Spontaneous
  Country: NL (occurrence: US)
  Receive Date: 20201230
  Receipt Date: 20201230
  Transmission Date: 20210114
  Serious: Yes (Other)
  Sender: FDA-Public Use
  Company Number: US-ASTELLAS-2020US045642

PATIENT
  Age: 6 Year
  Sex: Male
  Weight: 36 kg

DRUGS (4)
  1. EPIDIOLEX [Interacting]
     Active Substance: CANNABIDIOL
     Indication: EPILEPSY
     Route: 048
     Dates: start: 201812, end: 20190109
  2. TACROLIMUS. [Interacting]
     Active Substance: TACROLIMUS
     Dosage: 0.5 MG, UNKNOWN FREQ. (DOSE REDUCED)
     Route: 065
     Dates: start: 201812
  3. TACROLIMUS. [Suspect]
     Active Substance: TACROLIMUS
     Indication: IMMUNOSUPPRESSION
     Route: 065
     Dates: start: 2013
  4. EPIDIOLEX [Interacting]
     Active Substance: CANNABIDIOL
     Dosage: 200 MG, UNKNOWN FREQ. (DOSE REDUCED)
     Route: 048
     Dates: start: 20190109

REACTIONS (2)
  - Immunosuppressant drug level increased [Recovered/Resolved]
  - Drug interaction [Recovered/Resolved]

NARRATIVE: CASE EVENT DATE: 20181227
